FAERS Safety Report 20992621 (Version 1)
Quarter: 2022Q2

REPORT INFORMATION
  Report Type: Spontaneous
  Country: TR (occurrence: TR)
  Receive Date: 20220622
  Receipt Date: 20220622
  Transmission Date: 20220721
  Serious: Yes (Hospitalization, Other)
  Sender: FDA-Public Use
  Company Number: TR-SLATE RUN PHARMACEUTICALS-22TR001155

PATIENT

DRUGS (3)
  1. VORICONAZOLE [Suspect]
     Active Substance: VORICONAZOLE
     Indication: Aspergilloma
     Dosage: 200 MILLIGRAM, BID
     Route: 048
  2. CARBAMAZEPINE [Concomitant]
     Active Substance: CARBAMAZEPINE
     Indication: Trigeminal neuralgia
     Dosage: UNK
  3. GABAPENTIN [Concomitant]
     Active Substance: GABAPENTIN
     Indication: Trigeminal neuralgia

REACTIONS (3)
  - Myasthenia gravis [Recovering/Resolving]
  - Traumatic lung injury [Recovering/Resolving]
  - Respiratory distress [Recovering/Resolving]
